FAERS Safety Report 17909297 (Version 1)
Quarter: 2020Q2

REPORT INFORMATION
  Report Type: Spontaneous
  Country: PT (occurrence: PT)
  Receive Date: 20200618
  Receipt Date: 20200618
  Transmission Date: 20200714
  Serious: Yes (Other)
  Sender: FDA-Public Use
  Company Number: PT-AUROBINDO-AUR-APL-2018-039947

PATIENT
  Age: 13 Year
  Sex: Female

DRUGS (7)
  1. CEFOTAXIME [Suspect]
     Active Substance: CEFOTAXIME SODIUM
     Indication: EVIDENCE BASED TREATMENT
     Dosage: UNK
     Route: 042
  2. VANCOMYCIN [Suspect]
     Active Substance: VANCOMYCIN
     Dosage: UNK
     Route: 042
  3. VANCOMYCIN [Suspect]
     Active Substance: VANCOMYCIN
     Dosage: UNK
     Route: 042
  4. TAZOBACTAM [Suspect]
     Active Substance: TAZOBACTAM
     Indication: EVIDENCE BASED TREATMENT
     Dosage: UNK
     Route: 042
  5. VANCOMYCIN [Suspect]
     Active Substance: VANCOMYCIN
     Dosage: UNK
     Route: 042
  6. VANCOMYCIN [Suspect]
     Active Substance: VANCOMYCIN
     Indication: EVIDENCE BASED TREATMENT
     Dosage: UNK
     Route: 042
  7. TEICOPLANIN [Suspect]
     Active Substance: TEICOPLANIN
     Indication: EVIDENCE BASED TREATMENT
     Dosage: UNK
     Route: 042

REACTIONS (3)
  - Agranulocytosis [Unknown]
  - Chronic recurrent multifocal osteomyelitis [Recovered/Resolved]
  - Toxic skin eruption [Unknown]
